FAERS Safety Report 9191205 (Version 1)
Quarter: 2013Q1

REPORT INFORMATION
  Report Type: Report from Study
  Country: VE (occurrence: VE)
  Receive Date: 20130326
  Receipt Date: 20130326
  Transmission Date: 20140127
  Serious: Yes (Hospitalization)
  Sender: FDA-Public Use
  Company Number: VE-ABBOTT-13P-178-1066369-00

PATIENT
  Sex: Female
  Weight: 107 kg

DRUGS (3)
  1. HUMIRA [Suspect]
     Indication: RHEUMATOID ARTHRITIS
     Route: 058
     Dates: start: 20111220, end: 20130206
  2. METHOTREXATE [Concomitant]
     Indication: RHEUMATOID ARTHRITIS
     Dosage: 3 TIMES A WEEK, VO
     Dates: start: 2008
  3. ATACAND [Concomitant]
     Indication: HYPERTENSION
     Dosage: VO

REACTIONS (4)
  - Arthralgia [Recovering/Resolving]
  - Pyrexia [Recovering/Resolving]
  - Diarrhoea [Recovering/Resolving]
  - Haematuria [Recovering/Resolving]
